FAERS Safety Report 23676133 (Version 1)
Quarter: 2024Q1

REPORT INFORMATION
  Report Type: Spontaneous
  Country: US (occurrence: US)
  Receive Date: 20240327
  Receipt Date: 20240327
  Transmission Date: 20240409
  Serious: Yes (Other)
  Sender: FDA-Public Use
  Company Number: US-AMGEN-USASP2024056238

PATIENT
  Age: 82 Year
  Sex: Female

DRUGS (2)
  1. PROLIA [Suspect]
     Active Substance: DENOSUMAB
     Indication: Product used for unknown indication
     Dosage: UNK, Q6MO
     Route: 065
  2. INSULIN NOS [Concomitant]
     Active Substance: INSULIN NOS
     Indication: Diabetes mellitus
     Dosage: UNK

REACTIONS (13)
  - Dementia [Unknown]
  - Pharyngitis [Not Recovered/Not Resolved]
  - Blood glucose fluctuation [Unknown]
  - Balance disorder [Unknown]
  - Heart rate increased [Unknown]
  - Hypersensitivity [Unknown]
  - Insomnia [Unknown]
  - Myalgia [Unknown]
  - Muscular weakness [Unknown]
  - Bone pain [Unknown]
  - Pain in jaw [Unknown]
  - Cerebral disorder [Unknown]
  - Ill-defined disorder [Unknown]
